FAERS Safety Report 25855286 (Version 1)
Quarter: 2025Q3

REPORT INFORMATION
  Report Type: Spontaneous
  Country: US (occurrence: US)
  Receive Date: 20250927
  Receipt Date: 20250927
  Transmission Date: 20251021
  Serious: Yes (Other)
  Sender: MICRO LABS LIMITED
  Company Number: US-MICRO LABS LIMITED-ML2025-04878

PATIENT
  Age: 60 Year
  Sex: Female
  Weight: 47 kg

DRUGS (6)
  1. CLOBAZAM [Suspect]
     Active Substance: CLOBAZAM
     Indication: Long QT syndrome
     Dosage: DOSE: 10 MG?FREQUENCY: TWICE A DAY (MORNING AND NIGHT)
     Route: 048
  2. CLOBAZAM [Suspect]
     Active Substance: CLOBAZAM
     Dosage: A CAT SCAN WAS PERFORMED, AND HER DOSAGE WAS SUBSEQUENTLY INCREASED. SHE HAD PREVIOUSLY BEEN TAKING
     Route: 048
  3. NIFEDIPINE [Concomitant]
     Active Substance: NIFEDIPINE
     Indication: Blood pressure measurement
  4. ASPIRIN [Concomitant]
     Active Substance: ASPIRIN
     Indication: Product used for unknown indication
     Dosage: ASPIRIN 81 MG IN THE MORNING
  5. NADOLOL [Concomitant]
     Active Substance: NADOLOL
     Indication: Product used for unknown indication
     Dosage: NADOLOL (GENERIC FOR CORGARD) 40 MG, TWICE DAILY
  6. Topical oestrogen hormone replacement therapy, 10 mg [Concomitant]
     Indication: Product used for unknown indication

REACTIONS (1)
  - Seizure [Unknown]

NARRATIVE: CASE EVENT DATE: 20250801
